FAERS Safety Report 7457630-2 (Version None)
Quarter: 2011Q2

REPORT INFORMATION
  Report Type: 
  Country: None (occurrence: None)
  Receive Date: 20110426
  Receipt Date: 20110411
  Transmission Date: 20111010
  Serious: Yes (Life-Threatening, Other)
  Sender: FDA-Public Use
  Company Number: IDA-00531

PATIENT
  Age: 61 Year
  Sex: Female

DRUGS (2)
  1. LIDOCAINE  ADDITIVE: EPINEPHRINE STRENGHT: 2% [Suspect]
     Dosage: DAILY DOSE: 10ML , INJECTION
     Route: 030
  2. PROPRANOLOL [Suspect]
     Indication: HYPERTENSION
     Dosage: DAILY DOSE: 40 MG BID

REACTIONS (3)
  - BRADYCARDIA [None]
  - DRUG INTERACTION [None]
  - HYPERTENSION [None]
